FAERS Safety Report 17900363 (Version 3)
Quarter: 2020Q2

REPORT INFORMATION
  Report Type: Spontaneous
  Country: US (occurrence: US)
  Receive Date: 20200616
  Receipt Date: 20200629
  Transmission Date: 20200714
  Serious: No
  Sender: FDA-Public Use
  Company Number: US-PFIZER INC-2020232970

PATIENT
  Age: 77 Year
  Sex: Female
  Weight: 81.65 kg

DRUGS (4)
  1. PRAMIPEXOLE. [Concomitant]
     Active Substance: PRAMIPEXOLE
     Indication: RESTLESS LEGS SYNDROME
     Dosage: 3 MG, DAILY (1.5MG, TAKES TWO DAILY)
     Dates: start: 2016
  2. PREDNISONE. [Concomitant]
     Active Substance: PREDNISONE
     Dosage: UNK
     Dates: end: 20200611
  3. XELJANZ XR [Suspect]
     Active Substance: TOFACITINIB CITRATE
     Indication: RHEUMATOID ARTHRITIS
     Dosage: 11 MG, DAILY
     Route: 048
     Dates: start: 20200522, end: 20200610
  4. NEXIUM 24HR [Concomitant]
     Active Substance: ESOMEPRAZOLE MAGNESIUM
     Indication: GASTRIC DISORDER
     Dosage: 20 MG, DAILY

REACTIONS (8)
  - Vomiting [Recovered/Resolved with Sequelae]
  - Nervousness [Unknown]
  - Memory impairment [Unknown]
  - Nausea [Recovering/Resolving]
  - Weight increased [Unknown]
  - Dizziness [Recovering/Resolving]
  - Malaise [Unknown]
  - Abdominal pain upper [Unknown]

NARRATIVE: CASE EVENT DATE: 20200601
